FAERS Safety Report 10928481 (Version 1)
Quarter: 2015Q1

REPORT INFORMATION
  Report Type: Spontaneous
  Country: GB (occurrence: GB)
  Receive Date: 20150319
  Receipt Date: 20150319
  Transmission Date: 20150721
  Serious: Yes (Other)
  Sender: FDA-Public Use
  Company Number: GB-TEVA-546709ACC

PATIENT
  Sex: Female

DRUGS (1)
  1. RAMIPRIL. [Suspect]
     Active Substance: RAMIPRIL
     Dosage: AT NIGHT

REACTIONS (10)
  - Chest pain [Unknown]
  - Malaise [Unknown]
  - Insomnia [Unknown]
  - Hallucination, visual [Unknown]
  - Swelling face [Unknown]
  - Erythema [Unknown]
  - Feeling abnormal [Unknown]
  - Palpitations [Unknown]
  - Dizziness [Unknown]
  - Crying [Unknown]
